FAERS Safety Report 16020014 (Version 1)
Quarter: 2019Q1

REPORT INFORMATION
  Report Type: Other
  Country: ES (occurrence: GB)
  Receive Date: 20190228
  Receipt Date: 20190228
  Transmission Date: 20190418
  Serious: Yes (Other)
  Sender: FDA-Public Use
  Company Number: GB-B. BRAUN MEDICAL INC.-2063377

PATIENT
  Age: 33 Year
  Sex: Female

DRUGS (1)
  1. CEFTAZIDIME AND DEXTROSE [Suspect]
     Active Substance: CEFTAZIDIME

REACTIONS (1)
  - Subacute hepatic failure [None]
